FAERS Safety Report 7547898-6 (Version None)
Quarter: 2011Q2

REPORT INFORMATION
  Report Type: 
  Country: None (occurrence: None)
  Receive Date: 20110615
  Receipt Date: 20110606
  Transmission Date: 20111010
  Serious: No
  Sender: FDA-Public Use
  Company Number: US-BIOGENIDEC-2011BI020943

PATIENT
  Age: 38 Year
  Sex: Male

DRUGS (3)
  1. COPAXONE [Concomitant]
     Indication: MULTIPLE SCLEROSIS
  2. TYSABRI [Suspect]
     Route: 042
     Dates: start: 20090217, end: 20110208
  3. TYSABRI [Suspect]
     Indication: MULTIPLE SCLEROSIS
     Route: 042
     Dates: start: 20110531

REACTIONS (6)
  - ARTHROPATHY [None]
  - STRESS [None]
  - FATIGUE [None]
  - ARTHRALGIA [None]
  - GAIT DISTURBANCE [None]
  - DRUG HYPERSENSITIVITY [None]
